FAERS Safety Report 5497266-6 (Version None)
Quarter: 2007Q4

REPORT INFORMATION
  Report Type: 
  Country: None (occurrence: None)
  Receive Date: 20071025
  Receipt Date: 20070130
  Transmission Date: 20080405
  Serious: No
  Sender: FDA-Public Use
  Company Number: A0621007A

PATIENT
  Age: 30 Year
  Sex: Female

DRUGS (8)
  1. ADVAIR DISKUS 100/50 [Suspect]
     Indication: ASTHMA
     Route: 055
     Dates: start: 20060401
  2. ALBUTEROL [Concomitant]
  3. ZOLOFT [Concomitant]
  4. DEPAKOTE [Concomitant]
  5. TOPAMAX [Concomitant]
  6. CLONAZEPAM [Concomitant]
  7. OCP [Concomitant]
  8. PREVACID [Concomitant]

REACTIONS (2)
  - DYSPNOEA [None]
  - PHARMACEUTICAL PRODUCT COMPLAINT [None]
